FAERS Safety Report 21706935 (Version 1)
Quarter: 2022Q4

REPORT INFORMATION
  Report Type: Spontaneous
  Country: NL (occurrence: NL)
  Receive Date: 20221209
  Receipt Date: 20221209
  Transmission Date: 20230112
  Serious: Yes (Life-Threatening)
  Sender: FDA-Public Use
  Company Number: NL-ROCHE-2041201

PATIENT

DRUGS (4)
  1. OXALIPLATIN [Suspect]
     Active Substance: OXALIPLATIN
     Indication: Colorectal cancer
     Dosage: DATE OF MOST RECENT DOSE WAS ON 07/OCT/2016
     Dates: start: 20160729
  2. AVASTIN [Suspect]
     Active Substance: BEVACIZUMAB
     Indication: Colorectal cancer
     Dosage: MOST RECENT DOSE OF BEVACIZUMAB WAS ON 23/SEP/2016
     Dates: start: 20160729
  3. FLUOROURACIL [Suspect]
     Active Substance: FLUOROURACIL
     Indication: Colorectal cancer
     Dosage: MOST RECENT DOSE WAS ON 09/OCT/2016
     Dates: start: 20160729
  4. LEUCOVORIN [Suspect]
     Active Substance: LEUCOVORIN
     Indication: Colorectal cancer
     Dosage: MOST RECENT DOSE WAS ON 07/OCT/2016
     Dates: start: 20160729

REACTIONS (2)
  - Gastrointestinal anastomotic leak [Recovering/Resolving]
  - Sepsis [Recovering/Resolving]

NARRATIVE: CASE EVENT DATE: 20161031
